FAERS Safety Report 25102369 (Version 3)
Quarter: 2025Q2

REPORT INFORMATION
  Report Type: Spontaneous
  Country: US (occurrence: US)
  Receive Date: 20250320
  Receipt Date: 20250408
  Transmission Date: 20250717
  Serious: No
  Sender: APELLIS PHARMACEUTICALS
  Company Number: US-APELLIS-2024-APL-0001646

PATIENT

DRUGS (7)
  1. SYFOVRE [Suspect]
     Active Substance: PEGCETACOPLAN
     Indication: Product used for unknown indication
  2. LUTEIN\MINERALS\VITAMINS\ZEAXANTHIN [Concomitant]
     Active Substance: LUTEIN\MINERALS\VITAMINS\ZEAXANTHIN
     Indication: Product used for unknown indication
     Route: 048
  3. SYSTANE (HYPROMELLOSE 2910 (4000 MPA.S)) [Concomitant]
     Active Substance: HYPROMELLOSE 2910 (4000 MPA.S)
     Indication: Product used for unknown indication
     Route: 050
  4. LEVOTHYROXINE SODIUM [Concomitant]
     Active Substance: LEVOTHYROXINE SODIUM
     Indication: Product used for unknown indication
     Route: 048
  5. ROSUVASTATIN CALCIUM [Concomitant]
     Active Substance: ROSUVASTATIN CALCIUM
     Indication: Product used for unknown indication
     Route: 048
  6. CALCIUM [Concomitant]
     Active Substance: CALCIUM
     Indication: Product used for unknown indication
  7. MELOXICAM [Concomitant]
     Active Substance: MELOXICAM
     Indication: Product used for unknown indication

REACTIONS (8)
  - Eye inflammation [Unknown]
  - Dry age-related macular degeneration [Unknown]
  - Vitreous floaters [Unknown]
  - Uveitis [Unknown]
  - Neovascular age-related macular degeneration [Unknown]
  - Choroidal neovascularisation [Unknown]
  - Vitreous detachment [Unknown]
  - Dry eye [Unknown]
